FAERS Safety Report 14081493 (Version 1)
Quarter: 2017Q4

REPORT INFORMATION
  Report Type: Spontaneous
  Country: US (occurrence: US)
  Receive Date: 20171013
  Receipt Date: 20171013
  Transmission Date: 20180321
  Serious: Yes (Death, Hospitalization, Other)
  Sender: FDA-Public Use
  Company Number: US-MYLANLABS-2012040152

PATIENT
  Age: 51 Year
  Sex: Female

DRUGS (2)
  1. CARISOPRODOL. [Suspect]
     Active Substance: CARISOPRODOL
     Indication: PRODUCT USED FOR UNKNOWN INDICATION
     Dosage: UNK
  2. CLONAZEPAM. [Suspect]
     Active Substance: CLONAZEPAM
     Indication: PRODUCT USED FOR UNKNOWN INDICATION
     Dosage: UNK

REACTIONS (9)
  - Soft tissue haemorrhage [Fatal]
  - Hyperhidrosis [Not Recovered/Not Resolved]
  - Unresponsive to stimuli [Recovering/Resolving]
  - Pain [Not Recovered/Not Resolved]
  - Urinary bladder rupture [Fatal]
  - Toxicity to various agents [Recovering/Resolving]
  - Intentional overdose [Fatal]
  - Pneumonia aspiration [Recovering/Resolving]
  - Tachypnoea [Not Recovered/Not Resolved]

NARRATIVE: CASE EVENT DATE: 201008
